FAERS Safety Report 6794165-4 (Version None)
Quarter: 2010Q2

REPORT INFORMATION
  Report Type: 
  Country: None (occurrence: None)
  Receive Date: 20100624
  Receipt Date: 20080331
  Transmission Date: 20101027
  Serious: Yes (Hospitalization)
  Sender: FDA-Public Use
  Company Number: US-PFIZER INC-ENC200800067

PATIENT
  Sex: Male

DRUGS (10)
  1. ARGATROBAN [Suspect]
     Indication: ATRIAL FIBRILLATION
     Dosage: 2 MCG/KG/MIN
     Route: 042
     Dates: start: 20080329, end: 20080331
  2. SALBUTAMOL [Concomitant]
  3. LEVOTHYROXINE [Concomitant]
     Dosage: 35 UG
  4. TPN ELECTROLYTES IN PLASTIC CONTAINER [Concomitant]
  5. ZOSYN [Concomitant]
  6. EPOGEN [Concomitant]
  7. PANTOPRAZOLE SODIUM [Concomitant]
  8. HYDROCORTISONE [Concomitant]
  9. INSULIN [Concomitant]
  10. FILGRASTIM [Concomitant]

REACTIONS (1)
  - COAGULATION TIME PROLONGED [None]
